FAERS Safety Report 8997188 (Version 1)
Quarter: 2013Q1

REPORT INFORMATION
  Report Type: Spontaneous
  Country: US (occurrence: US)
  Receive Date: 20130104
  Receipt Date: 20130104
  Transmission Date: 20140127
  Serious: Yes (Other)
  Sender: FDA-Public Use
  Company Number: US-JNJFOC-20121213257

PATIENT
  Sex: 0

DRUGS (1)
  1. BENADRYL [Suspect]
     Indication: HYPERSENSITIVITY
     Route: 065

REACTIONS (3)
  - Shock hypoglycaemic [Unknown]
  - Dizziness [None]
  - Fall [None]
